FAERS Safety Report 22239300 (Version 2)
Quarter: 2023Q2

REPORT INFORMATION
  Report Type: Spontaneous
  Country: US (occurrence: US)
  Receive Date: 20230421
  Receipt Date: 20230607
  Transmission Date: 20230721
  Serious: No
  Sender: FDA-Public Use
  Company Number: US-BRISTOL-MYERS SQUIBB COMPANY-2023-057506

PATIENT
  Age: 83 Year
  Sex: Male
  Weight: 82.1 kg

DRUGS (1)
  1. REVLIMID [Suspect]
     Active Substance: LENALIDOMIDE
     Indication: Plasma cell myeloma
     Dosage: FREQUENCY: 1 CAPSULE DAILY FOR 7 DAYS ON AND 7 DAYS OFF, 25 MG ONCE DAILY ORALLY ON DAYS 1-21 OF REP
     Route: 048
     Dates: start: 20211103

REACTIONS (1)
  - Blood immunoglobulin A increased [Unknown]

NARRATIVE: CASE EVENT DATE: 20220412
